FAERS Safety Report 5071812-9 (Version None)
Quarter: 2006Q3

REPORT INFORMATION
  Report Type: 
  Country: None (occurrence: None)
  Receive Date: 20060801
  Receipt Date: 20060726
  Transmission Date: 20061208
  Serious: Yes (Other)
  Sender: FDA-Public Use
  Company Number: THQ2006A00396

PATIENT
  Age: 65 Year
  Sex: Male

DRUGS (6)
  1. ACTOS [Suspect]
     Indication: DIABETES MELLITUS NON-INSULIN-DEPENDENT
     Dosage: 15 MG (15 MG, 1 - 2) UNK PER ORAL
     Route: 048
     Dates: start: 20060125, end: 20060308
  2. ACTOS [Suspect]
     Indication: DIABETES MELLITUS NON-INSULIN-DEPENDENT
     Dosage: 15 MG (15 MG, 1 - 2) UNK PER ORAL
     Route: 048
     Dates: start: 20060125
  3. FELODIPINE [Suspect]
  4. BEZAFIBRATE [Suspect]
  5. OMEPRAZOLE [Suspect]
  6. AMITRIPTYLINE HCL [Suspect]

REACTIONS (2)
  - DRUG INTERACTION [None]
  - HYPERTENSION [None]
